FAERS Safety Report 9633855 (Version 1)
Quarter: 2013Q4

REPORT INFORMATION
  Report Type: Report from Study
  Country: CO (occurrence: CO)
  Receive Date: 20131021
  Receipt Date: 20131021
  Transmission Date: 20140711
  Serious: Yes (Other)
  Sender: FDA-Public Use
  Company Number: CO-BAYER-2013-124082

PATIENT
  Sex: Male

DRUGS (1)
  1. BETAFERON [Suspect]
     Dosage: UNK

REACTIONS (2)
  - Cholelithiasis [Recovered/Resolved]
  - Hepatic enzyme increased [Recovered/Resolved]
